FAERS Safety Report 4493045-7 (Version None)
Quarter: 2004Q4

REPORT INFORMATION
  Report Type: 
  Country: None (occurrence: None)
  Receive Date: 20041104
  Receipt Date: 20040127
  Transmission Date: 20050328
  Serious: Yes (Life-Threatening, Hospitalization, Disabling, Other)
  Sender: FDA-Public Use
  Company Number: US-GLAXOSMITHKLINE-A0496013A

PATIENT
  Age: 23 Year
  Sex: Female

DRUGS (7)
  1. LAMICTAL [Suspect]
     Indication: BIPOLAR DISORDER
     Dosage: 200MG PER DAY
     Route: 048
     Dates: start: 20031126, end: 20040115
  2. PHENYTOIN [Suspect]
  3. NARCOTIC [Suspect]
  4. PREDNISONE [Suspect]
  5. NARCOTIC [Suspect]
  6. EFFEXOR XR [Concomitant]
     Dosage: 300MG PER DAY
     Dates: start: 20020514
  7. IBUPROFEN [Concomitant]

REACTIONS (46)
  - ABDOMINAL PAIN [None]
  - ABDOMINAL PAIN UPPER [None]
  - ADVERSE DRUG REACTION [None]
  - ANOREXIA [None]
  - ASTHENIA [None]
  - BACK PAIN [None]
  - BLOOD BILIRUBIN INCREASED [None]
  - BLOOD CALCIUM INCREASED [None]
  - CANDIDIASIS [None]
  - CHROMATURIA [None]
  - COUGH [None]
  - DECREASED APPETITE [None]
  - DELIRIUM [None]
  - DERMATITIS EXFOLIATIVE [None]
  - DIARRHOEA [None]
  - DYSPNOEA [None]
  - ENCEPHALOPATHY [None]
  - FATIGUE [None]
  - HAEMATURIA [None]
  - HEPATIC ENZYME INCREASED [None]
  - HEPATIC PAIN [None]
  - HEPATITIS [None]
  - HEPATITIS GRANULOMATOUS [None]
  - HEPATOMEGALY [None]
  - HEPATOTOXICITY [None]
  - INFLUENZA LIKE ILLNESS [None]
  - JAUNDICE [None]
  - LIVER TENDERNESS [None]
  - LYMPHADENOPATHY [None]
  - MOUTH PLAQUE [None]
  - MYALGIA [None]
  - NAUSEA [None]
  - OCULAR ICTERUS [None]
  - PRURITUS [None]
  - PYREXIA [None]
  - RASH [None]
  - RASH ERYTHEMATOUS [None]
  - RASH GENERALISED [None]
  - RASH MACULO-PAPULAR [None]
  - RASH PAPULOSQUAMOUS [None]
  - RASH SCALY [None]
  - SKIN DESQUAMATION [None]
  - TRANSAMINASES INCREASED [None]
  - VISUAL DISTURBANCE [None]
  - VOMITING [None]
  - WEIGHT DECREASED [None]
